FAERS Safety Report 21381626 (Version 7)
Quarter: 2024Q1

REPORT INFORMATION
  Report Type: Spontaneous
  Country: US (occurrence: US)
  Receive Date: 20220927
  Receipt Date: 20240301
  Transmission Date: 20240409
  Serious: Yes (Hospitalization, Other)
  Sender: FDA-Public Use
  Company Number: US-PFIZER INC-PV202200071458

PATIENT
  Age: 88 Year
  Sex: Female
  Weight: 64.399 kg

DRUGS (9)
  1. XELJANZ XR [Suspect]
     Active Substance: TOFACITINIB CITRATE
     Dosage: 11 MG
  2. DULOXETINE [Concomitant]
     Active Substance: DULOXETINE
     Dosage: 60 MG, 1X/DAY
     Dates: start: 2018
  3. DULOXETINE [Concomitant]
     Active Substance: DULOXETINE
     Dosage: 60 MG, 1X/DAY
  4. FISH OIL [Concomitant]
     Active Substance: FISH OIL
     Dosage: UNK
     Dates: start: 2021
  5. FOLIC ACID [Concomitant]
     Active Substance: FOLIC ACID
     Dosage: UNK
     Dates: start: 2021
  6. HYDROXYCHLOROQUINE [Concomitant]
     Active Substance: HYDROXYCHLOROQUINE
     Dosage: UNK
     Dates: start: 2018
  7. LEVETIRACETAM [Concomitant]
     Active Substance: LEVETIRACETAM
     Indication: Surgery
     Dosage: UNK
     Dates: start: 2020
  8. LEVOTHYROXINE [Concomitant]
     Active Substance: LEVOTHYROXINE\LEVOTHYROXINE SODIUM
     Indication: Surgery
     Dosage: 0.75 MG, 1X/DAY, STARTED SINCE 12 YEARS OLD
  9. XARELTO [Concomitant]
     Active Substance: RIVAROXABAN
     Indication: Prophylaxis
     Dosage: 20 MG, 1X/DAY
     Dates: start: 2019

REACTIONS (10)
  - Cardiac disorder [Unknown]
  - Finger deformity [Not Recovered/Not Resolved]
  - Hypoacusis [Recovered/Resolved]
  - Joint swelling [Recovering/Resolving]
  - Blood pressure increased [Recovered/Resolved]
  - Brain neoplasm [Recovering/Resolving]
  - Pneumonia [Unknown]
  - Atrial fibrillation [Unknown]
  - Blood sodium increased [Unknown]
  - Heart rate increased [Unknown]
